FAERS Safety Report 6532177-6 (Version None)
Quarter: 2010Q1

REPORT INFORMATION
  Report Type: 
  Country: None (occurrence: None)
  Receive Date: 20100108
  Receipt Date: 20091228
  Transmission Date: 20100710
  Serious: Yes (Hospitalization, Other)
  Sender: FDA-Public Use
  Company Number: FR-PFIZER INC-2009315320

PATIENT
  Age: 1 Day
  Sex: Male
  Weight: 3.61 kg

DRUGS (2)
  1. NEURONTIN [Suspect]
     Dosage: 300 MG, 1X/DAY
     Route: 064
  2. TRILEPTAL [Suspect]
     Dosage: 600 MG, 1X/DAY
     Route: 064

REACTIONS (2)
  - DRUG EXPOSURE DURING PREGNANCY [None]
  - RESPIRATORY DISTRESS [None]
